APPROVED DRUG PRODUCT: FEMHRT
Active Ingredient: ETHINYL ESTRADIOL; NORETHINDRONE ACETATE
Strength: 0.005MG;1MG **Federal Register determination that product was not discontinued or withdrawn for safety or effectiveness reasons**
Dosage Form/Route: TABLET;ORAL
Application: N021065 | Product #002
Applicant: ALLERGAN PHARMACEUTICALS INTERNATIONAL LTD
Approved: Oct 15, 1999 | RLD: Yes | RS: No | Type: DISCN